FAERS Safety Report 20790161 (Version 1)
Quarter: 2022Q2

REPORT INFORMATION
  Report Type: Report from Study
  Country: FR (occurrence: FR)
  Receive Date: 20220505
  Receipt Date: 20220505
  Transmission Date: 20220721
  Serious: Yes (Other)
  Sender: FDA-Public Use
  Company Number: FR-SERVIER-S22004387

PATIENT

DRUGS (19)
  1. PEGASPARGASE [Suspect]
     Active Substance: PEGASPARGASE
     Indication: Acute lymphocytic leukaemia
     Dosage: 800 IU, D8, D36, D64
     Route: 042
     Dates: start: 20200318
  2. VINCRISTINE [Suspect]
     Active Substance: VINCRISTINE
     Indication: Acute lymphocytic leukaemia
     Dosage: 0.9 MG, D1, D8, D29, D36, D57, UNKNOWN
     Route: 042
     Dates: start: 20200311
  3. DEXAMETHASONE [Suspect]
     Active Substance: DEXAMETHASONE
     Indication: Acute lymphocytic leukaemia
     Dosage: 3.8 MG, D1 TO D5, D29 TO D33, UNKNOWN
     Route: 048
     Dates: start: 20200311
  4. MERCAPTOPURINE [Suspect]
     Active Substance: MERCAPTOPURINE
     Indication: Acute lymphocytic leukaemia
     Dosage: 32 MG, D1 TO D21, D29 TO D49, UNKNOWN
     Route: 048
     Dates: start: 20200311
  5. METHOTREXATE [Suspect]
     Active Substance: METHOTREXATE
     Indication: Acute lymphocytic leukaemia
     Dosage: 8 MG, D2, D30, D58
     Route: 037
     Dates: start: 20200312
  6. METHOTREXATE [Suspect]
     Active Substance: METHOTREXATE
     Dosage: 16 MG, D8, D15, D22, D36, D43, UNKNOWN
     Route: 048
     Dates: start: 20200318
  7. ANTITHROMBIN III HUMAN [Concomitant]
     Active Substance: ANTITHROMBIN III HUMAN
     Indication: Product used for unknown indication
     Dosage: UNK
     Route: 065
  8. PIPERACILLIN AND TAZOBACTAM [Concomitant]
     Active Substance: PIPERACILLIN SODIUM\TAZOBACTAM SODIUM
     Indication: Product used for unknown indication
     Dosage: UNK
     Route: 065
  9. FILGRASTIM [Concomitant]
     Active Substance: FILGRASTIM
     Indication: Product used for unknown indication
     Dosage: UNK
     Route: 065
  10. COTRIMOXAZOLE [Concomitant]
     Active Substance: SULFAMETHOXAZOLE\TRIMETHOPRIM
     Indication: Product used for unknown indication
     Dosage: UNK
     Route: 065
  11. AMPHOTERICIN B [Concomitant]
     Active Substance: AMPHOTERICIN B
     Indication: Product used for unknown indication
     Dosage: UNK
     Route: 065
  12. AMLODIPINE [Concomitant]
     Active Substance: AMLODIPINE BESYLATE
     Indication: Product used for unknown indication
     Dosage: UNK
     Route: 065
  13. CHOLECALCIFEROL [Concomitant]
     Active Substance: CHOLECALCIFEROL
     Indication: Product used for unknown indication
     Dosage: UNK
     Route: 065
  14. SODIUM BICARBONATE [Concomitant]
     Active Substance: SODIUM BICARBONATE
     Indication: Product used for unknown indication
     Dosage: UNK
     Route: 065
  15. PENTAMIDINE [Concomitant]
     Active Substance: PENTAMIDINE
     Indication: Product used for unknown indication
     Dosage: UNK
     Route: 065
  16. MEROPENEM [Concomitant]
     Active Substance: MEROPENEM
     Indication: Product used for unknown indication
     Dosage: UNK
     Route: 065
  17. VANCOMYCIN [Concomitant]
     Active Substance: VANCOMYCIN
     Indication: Product used for unknown indication
     Dosage: UNK
     Route: 065
  18. AMIKACIN [Concomitant]
     Active Substance: AMIKACIN
     Indication: Product used for unknown indication
     Dosage: UNK
     Route: 065
  19. CEFTAZIDIME [Concomitant]
     Active Substance: CEFTAZIDIME
     Indication: Product used for unknown indication
     Dosage: UNK
     Route: 065

REACTIONS (1)
  - Escherichia pyelonephritis [Recovered/Resolved]

NARRATIVE: CASE EVENT DATE: 20200311
